FAERS Safety Report 8133532-3 (Version None)
Quarter: 2012Q1

REPORT INFORMATION
  Report Type: 
  Country: None (occurrence: None)
  Receive Date: 20120213
  Receipt Date: 20120208
  Transmission Date: 20120608
  Serious: Yes (Hospitalization, Other)
  Sender: FDA-Public Use
  Company Number: JP-PFIZER INC-2012013524

PATIENT
  Age: 69 Year
  Sex: Female
  Weight: 51 kg

DRUGS (11)
  1. MUCODYNE [Concomitant]
     Indication: SINUSITIS
     Dosage: 1000 MG, 1X/DAY
     Route: 048
  2. NORVASC [Concomitant]
     Indication: HYPERTENSION
     Dosage: 5 MG, 1X/DAY
     Route: 048
  3. LYRICA [Suspect]
     Indication: FACIAL PAIN
     Dosage: 50 MG, 2X/DAY
     Route: 048
     Dates: start: 20120111, end: 20120114
  4. LYRICA [Suspect]
     Dosage: 25 MG/DAY
     Dates: start: 20120116
  5. CLEANAL [Concomitant]
     Indication: SINUSITIS
     Dosage: 400 MG, 1X/DAY
     Route: 048
  6. NEUROTROPIN [Concomitant]
     Indication: FACIAL PAIN
     Dosage: 8 IU, 2X/DAY
     Route: 048
     Dates: start: 20111222
  7. METHYCOBAL [Concomitant]
     Indication: FACIAL PAIN
     Dosage: 500 UG, 3X/DAY
     Route: 048
     Dates: start: 20111222
  8. DOXAZOSIN MESILATE [Concomitant]
     Indication: HYPERTENSION
     Dosage: 1 MG, 1X/DAY
     Route: 048
     Dates: end: 20120119
  9. FAMOTIDINE [Concomitant]
     Indication: GASTRITIS
     Dosage: 20 MG, 1X/DAY
     Route: 048
     Dates: end: 20120119
  10. LOSARTAN POTASSIUM [Concomitant]
     Indication: HYPERTENSION
     Dosage: 1 DF, 1X/DAY
     Route: 048
     Dates: end: 20120119
  11. OLOPATADINE HCL [Concomitant]
     Indication: RHINITIS ALLERGIC
     Dosage: 10 MG, 1X/DAY
     Route: 048

REACTIONS (8)
  - BLOOD PRESSURE DECREASED [None]
  - VOMITING [None]
  - LOSS OF CONSCIOUSNESS [None]
  - FACIAL PAIN [None]
  - DECREASED APPETITE [None]
  - DIZZINESS [None]
  - NAUSEA [None]
  - RENAL IMPAIRMENT [None]
